FAERS Safety Report 4826369-1 (Version None)
Quarter: 2005Q4

REPORT INFORMATION
  Report Type: 
  Country: None (occurrence: None)
  Receive Date: 20051111
  Receipt Date: 20051109
  Transmission Date: 20060501
  Serious: Yes (Hospitalization)
  Sender: FDA-Public Use
  Company Number: PHBS2005NO16468

PATIENT
  Age: 89 Year
  Sex: Female

DRUGS (7)
  1. DIOVAN COMP [Suspect]
     Dosage: 1 DF, QD
     Route: 048
     Dates: end: 20051018
  2. DUPHALAC [Suspect]
     Indication: CONSTIPATION
     Route: 048
     Dates: end: 20051001
  3. BRICANYL [Concomitant]
     Indication: CHRONIC OBSTRUCTIVE PULMONARY DISEASE
     Dosage: 0.25 MG, QD
  4. PREDNISOLONE [Concomitant]
     Indication: POLYMYALGIA RHEUMATICA
     Dosage: 5 MG, QD
     Route: 048
  5. PULMICORT [Concomitant]
     Indication: CHRONIC OBSTRUCTIVE PULMONARY DISEASE
     Dosage: 400 UG, UNK
  6. OXAZEPAM [Concomitant]
     Dosage: 15 MG, UNK
     Route: 048
  7. AERIUS [Concomitant]
     Dosage: 5 MG, UNK
     Route: 048

REACTIONS (7)
  - CONSTIPATION [None]
  - GENERAL PHYSICAL CONDITION ABNORMAL [None]
  - HYPONATRAEMIA [None]
  - LISTLESS [None]
  - NAUSEA [None]
  - ORAL INTAKE REDUCED [None]
  - VOMITING [None]
